FAERS Safety Report 19961892 (Version 1)
Quarter: 2021Q4

REPORT INFORMATION
  Report Type: Spontaneous
  Country: US (occurrence: US)
  Receive Date: 20211018
  Receipt Date: 20211018
  Transmission Date: 20220303
  Serious: Yes (Hospitalization)
  Sender: FDA-Public Use
  Company Number: US-ABBVIE-21K-163-4117788-00

PATIENT
  Age: 81 Year
  Sex: Male

DRUGS (1)
  1. IMBRUVICA [Suspect]
     Active Substance: IBRUTINIB
     Indication: Product used for unknown indication
     Dosage: ONE TABLETS BY MOUTH DAILY
     Route: 048
     Dates: start: 20210521

REACTIONS (3)
  - Asthenia [Unknown]
  - Hallucination [Unknown]
  - Malaise [Unknown]

NARRATIVE: CASE EVENT DATE: 20211001
